FAERS Safety Report 8314075-0 (Version None)
Quarter: 2012Q2

REPORT INFORMATION
  Report Type: 
  Country: None (occurrence: None)
  Receive Date: 20120426
  Receipt Date: 20120418
  Transmission Date: 20120825
  Serious: Yes (Life-Threatening, Hospitalization, Other)
  Sender: FDA-Public Use
  Company Number: US-CELGENEUS-163-21880-12042482

PATIENT
  Sex: Male
  Weight: 74.456 kg

DRUGS (12)
  1. LISINOPRIL [Concomitant]
     Dosage: 20 MILLIGRAM
     Route: 048
     Dates: start: 20060101
  2. ASPIRIN [Concomitant]
     Dosage: 325 MILLIGRAM
     Route: 065
     Dates: start: 20110101
  3. LORTAB [Concomitant]
     Dosage: 7.5/550
     Route: 048
     Dates: start: 20110101
  4. PROCHLORPERAZINE [Concomitant]
     Dosage: 10 MILLIGRAM
     Route: 048
     Dates: start: 20120101
  5. GRAN [Concomitant]
     Dosage: 4 MILLIGRAM
     Route: 048
     Dates: start: 20120101
  6. ADVIL PM [Concomitant]
     Dosage: 200 MILLIGRAM
     Route: 048
     Dates: start: 20050101
  7. FLOMAX [Concomitant]
     Dosage: .04 MILLIGRAM
     Route: 048
     Dates: start: 20060101
  8. REVLIMID [Suspect]
     Indication: MULTIPLE MYELOMA
     Dosage: 25 MILLIGRAM
     Route: 048
     Dates: start: 20120120
  9. NEURONTIN [Concomitant]
     Dosage: 100 MILLIGRAM
     Route: 048
     Dates: start: 20060101
  10. FENTANYL [Concomitant]
     Dosage: 1.2 MILLIGRAM
     Route: 061
     Dates: start: 20120101
  11. LABETALOL HCL [Concomitant]
     Route: 048
     Dates: start: 20110701
  12. M.V.I. [Concomitant]
     Route: 048
     Dates: start: 20070101

REACTIONS (1)
  - INTESTINAL OBSTRUCTION [None]
